FAERS Safety Report 9129263 (Version 1)
Quarter: 2013Q1

REPORT INFORMATION
  Report Type: Spontaneous
  Country: US (occurrence: US)
  Receive Date: 20130228
  Receipt Date: 20130228
  Transmission Date: 20140127
  Serious: No
  Sender: FDA-Public Use
  Company Number: US-ABBOTT-13P-163-1048094-00

PATIENT
  Age: 60 Year
  Sex: Male
  Weight: 81.72 kg

DRUGS (3)
  1. ANDROGEL 1.62% [Suspect]
     Indication: BLOOD TESTOSTERONE DECREASED
     Route: 061
     Dates: start: 20130131
  2. LIPITOR [Concomitant]
     Indication: FAMILIAL RISK FACTOR
  3. ZOLOFT [Concomitant]
     Indication: ANXIETY

REACTIONS (1)
  - Musculoskeletal pain [Not Recovered/Not Resolved]
